FAERS Safety Report 5869802-9 (Version None)
Quarter: 2008Q3

REPORT INFORMATION
  Report Type: 
  Country: None (occurrence: None)
  Receive Date: 20080904
  Receipt Date: 20080826
  Transmission Date: 20090109
  Serious: Yes (Death, Hospitalization)
  Sender: FDA-Public Use
  Company Number: JP-AMGEN-US295918

PATIENT
  Sex: Male
  Weight: 43 kg

DRUGS (5)
  1. ENBREL [Suspect]
     Indication: RHEUMATOID ARTHRITIS
     Route: 058
     Dates: start: 20070817, end: 20080706
  2. BETAMETHASONE [Concomitant]
     Indication: RHEUMATOID ARTHRITIS
     Route: 048
     Dates: start: 20080207, end: 20080711
  3. CELECOXIB [Concomitant]
     Indication: RHEUMATOID ARTHRITIS
     Route: 048
     Dates: start: 20070724, end: 20080711
  4. PREDONINE [Concomitant]
     Indication: RHEUMATOID ARTHRITIS
     Route: 048
     Dates: start: 20070803, end: 20080206
  5. SELBEX [Concomitant]
     Route: 048
     Dates: start: 20070724, end: 20080711

REACTIONS (3)
  - PNEUMONIA [None]
  - PNEUMOTHORAX [None]
  - TUBERCULOSIS [None]
